FAERS Safety Report 10852633 (Version 1)
Quarter: 2015Q1

REPORT INFORMATION
  Report Type: Spontaneous
  Country: US (occurrence: US)
  Receive Date: 20150222
  Receipt Date: 20150222
  Transmission Date: 20150721
  Serious: No
  Sender: FDA-Public Use
  Company Number: US-ALLERGAN-1420796US

PATIENT
  Age: 51 Year
  Sex: Female

DRUGS (5)
  1. XANAX [Concomitant]
     Active Substance: ALPRAZOLAM
     Indication: SLEEP DISORDER
     Dosage: 1/2 TABLET, TWICE A MONTH
     Route: 048
  2. TRIBENZOR [Concomitant]
     Active Substance: AMLODIPINE BESYLATE\HYDROCHLOROTHIAZIDE\OLMESARTAN MEDOXOMIL
     Indication: HYPERTENSION
     Dosage: UNK UNK, QD
     Route: 048
  3. BOTOX COSMETIC [Suspect]
     Active Substance: ONABOTULINUMTOXINA
     Indication: SKIN WRINKLING
     Dosage: 15 UNITS, SINGLE
     Route: 030
     Dates: start: 20140909, end: 20140909
  4. BOTOX COSMETIC [Suspect]
     Active Substance: ONABOTULINUMTOXINA
     Indication: SKIN WRINKLING
     Dosage: 15 UNITS, SINGLE
     Route: 030
     Dates: start: 20140909, end: 20140909
  5. CALCIUM [Concomitant]
     Active Substance: CALCIUM
     Indication: SUPPLEMENTATION THERAPY
     Dosage: UNK

REACTIONS (15)
  - Eyelid oedema [Unknown]
  - Middle ear effusion [Not Recovered/Not Resolved]
  - Nausea [Not Recovered/Not Resolved]
  - Sinus congestion [Unknown]
  - Eyelid disorder [Unknown]
  - Pain [Recovered/Resolved]
  - Dizziness [Recovering/Resolving]
  - Paraesthesia [Unknown]
  - Ear discomfort [Unknown]
  - Ear infection [Unknown]
  - Headache [Unknown]
  - Eyelid ptosis [Recovered/Resolved]
  - Influenza like illness [Recovered/Resolved]
  - Weight decreased [Unknown]
  - Tooth disorder [Unknown]

NARRATIVE: CASE EVENT DATE: 201409
